FAERS Safety Report 4578485-X (Version None)
Quarter: 2005Q1

REPORT INFORMATION
  Report Type: 
  Country: None (occurrence: None)
  Receive Date: 20050211
  Receipt Date: 20050202
  Transmission Date: 20050727
  Serious: Yes (Life-Threatening, Hospitalization)
  Sender: FDA-Public Use
  Company Number: FR-JNJFOC-20050200843

PATIENT
  Sex: Female
  Weight: 53 kg

DRUGS (3)
  1. EPITOMAX [Suspect]
     Indication: MIGRAINE PROPHYLAXIS
     Route: 049
     Dates: start: 20031015, end: 20050103
  2. NUVARING [Suspect]
     Indication: CONTRACEPTION
     Route: 015
  3. AVLOCARDYL [Concomitant]
     Indication: MIGRAINE
     Route: 049

REACTIONS (6)
  - DYSPNOEA [None]
  - ILIAC ARTERY THROMBOSIS [None]
  - PARAESTHESIA [None]
  - PULMONARY EMBOLISM [None]
  - VISUAL DISTURBANCE [None]
  - WEIGHT DECREASED [None]
